FAERS Safety Report 6657789-0 (Version None)
Quarter: 2010Q1

REPORT INFORMATION
  Report Type: 
  Country: None (occurrence: None)
  Receive Date: 20100330
  Receipt Date: 20100324
  Transmission Date: 20100710
  Serious: Yes (Hospitalization)
  Sender: FDA-Public Use
  Company Number: IT-ROCHE-683955

PATIENT
  Sex: Male

DRUGS (3)
  1. VESANOID [Suspect]
     Route: 048
     Dates: start: 20100113, end: 20100204
  2. ZAVEDOS [Suspect]
     Dosage: FREQUENCY: TOTAL
     Route: 042
     Dates: start: 20100115, end: 20100121
  3. URBASON SOLUBILE [Suspect]
     Route: 042
     Dates: start: 20100113, end: 20100204

REACTIONS (4)
  - CELLULITIS [None]
  - HYPERPYREXIA [None]
  - OROPHARYNGEAL PAIN [None]
  - STOMATITIS [None]
